FAERS Safety Report 20551740 (Version 1)
Quarter: 2022Q1

REPORT INFORMATION
  Report Type: Spontaneous
  Country: CN (occurrence: CN)
  Receive Date: 20220304
  Receipt Date: 20220304
  Transmission Date: 20220423
  Serious: Yes (Other)
  Sender: FDA-Public Use
  Company Number: CN-PFIZER INC-202200005393

PATIENT
  Age: 60 Year
  Sex: Male

DRUGS (2)
  1. VIZIMPRO [Suspect]
     Active Substance: DACOMITINIB
     Dosage: 3 DF, DAILY
     Route: 048
     Dates: start: 20211210, end: 20211230
  2. VIZIMPRO [Suspect]
     Active Substance: DACOMITINIB
     Dosage: 2 DF, DAILY
     Route: 048
     Dates: start: 20211231, end: 20220110

REACTIONS (9)
  - Hepatic failure [Not Recovered/Not Resolved]
  - Tongue exfoliation [Unknown]
  - Decreased appetite [Unknown]
  - Ageusia [Unknown]
  - Throat irritation [Unknown]
  - Tongue disorder [Unknown]
  - Asthenia [Unknown]
  - Chromaturia [Unknown]
  - Mood altered [Unknown]

NARRATIVE: CASE EVENT DATE: 20211230
